FAERS Safety Report 12484188 (Version 1)
Quarter: 2016Q2

REPORT INFORMATION
  Report Type: Spontaneous
  Country: US (occurrence: None)
  Receive Date: 20160620
  Receipt Date: 20160620
  Transmission Date: 20160815
  Serious: Yes (Other)
  Sender: FDA-Public Use
  Company Number: None

PATIENT
  Age: 33 Year
  Sex: Male
  Weight: 95.71 kg

DRUGS (5)
  1. GAS-X [Concomitant]
     Active Substance: DIMETHICONE
  2. RAIDIAN [Concomitant]
  3. PROBITICS GNC50 [Concomitant]
  4. LOBASTAION [Concomitant]
  5. ICY HOT MEDICATED NO MESS APPLICATOR [Suspect]
     Active Substance: MENTHOL
     Indication: MYALGIA
     Dates: start: 20160619, end: 20160619

REACTIONS (3)
  - Application site pain [None]
  - Application site burn [None]
  - Chemical injury [None]

NARRATIVE: CASE EVENT DATE: 20160619
